FAERS Safety Report 11376975 (Version 2)
Quarter: 2016Q3

REPORT INFORMATION
  Report Type: Spontaneous
  Country: US (occurrence: US)
  Receive Date: 20150813
  Receipt Date: 20160706
  Transmission Date: 20161109
  Serious: No
  Sender: FDA-Public Use
  Company Number: US-PFIZER INC-2015260335

PATIENT
  Sex: Male

DRUGS (1)
  1. INFANTS ADVIL CONCENTRATED DROPS [Suspect]
     Active Substance: IBUPROFEN

REACTIONS (3)
  - Teething [Unknown]
  - Feeling abnormal [Unknown]
  - Drug ineffective [Unknown]
